FAERS Safety Report 8340256-6 (Version None)
Quarter: 2012Q2

REPORT INFORMATION
  Report Type: 
  Country: None (occurrence: None)
  Receive Date: 20120507
  Receipt Date: 20120501
  Transmission Date: 20120825
  Serious: Yes (Hospitalization)
  Sender: FDA-Public Use
  Company Number: CHPA2012US009631

PATIENT
  Age: 65 Year
  Sex: Female

DRUGS (5)
  1. AGGRENOX [Suspect]
     Dosage: UNK, UNK
     Route: 065
  2. ASPIRIN [Concomitant]
     Dosage: UNK
     Route: 048
     Dates: start: 20120430
  3. AMLODIPINE BESYLATE [Suspect]
     Dosage: UNK, UNK
     Route: 065
     Dates: start: 20120401
  4. PREVACID 24 HR [Suspect]
     Indication: GASTROOESOPHAGEAL REFLUX DISEASE
     Dosage: 30 MG, QD
     Route: 048
     Dates: start: 20090101
  5. AMLODIPINE BESYLATE [Suspect]
     Dosage: 0.5DF
     Route: 065

REACTIONS (5)
  - CEREBRAL HAEMORRHAGE [None]
  - OVERDOSE [None]
  - HYPOTENSION [None]
  - OFF LABEL USE [None]
  - INCORRECT DRUG ADMINISTRATION DURATION [None]
